FAERS Safety Report 7187424-7 (Version None)
Quarter: 2010Q4

REPORT INFORMATION
  Report Type: 
  Country: None (occurrence: None)
  Receive Date: 20101222
  Receipt Date: 20100719
  Transmission Date: 20110411
  Serious: No
  Sender: FDA-Public Use
  Company Number: US-AMGEN-KDL425613

PATIENT

DRUGS (3)
  1. ENBREL [Suspect]
     Indication: RHEUMATOID ARTHRITIS
     Dosage: 50 MG, QWK
     Route: 058
     Dates: start: 20100719
  2. HYDROXYCHLOROQUINE SULFATE [Concomitant]
     Dosage: 300 MG, QD
  3. METHOTREXATE [Concomitant]
     Dosage: 15 MG, QWK

REACTIONS (4)
  - MYALGIA [None]
  - PAIN IN EXTREMITY [None]
  - POOR QUALITY SLEEP [None]
  - STRESS [None]
